FAERS Safety Report 21158674 (Version 1)
Quarter: 2022Q3

REPORT INFORMATION
  Report Type: Report from Study
  Country: US (occurrence: US)
  Receive Date: 20220802
  Receipt Date: 20220802
  Transmission Date: 20221027
  Serious: Yes (Hospitalization)
  Sender: FDA-Public Use
  Company Number: US-BIOGEN-2022BI01143486

PATIENT
  Sex: Male

DRUGS (1)
  1. SPINRAZA [Suspect]
     Active Substance: NUSINERSEN
     Indication: Spinal muscular atrophy
     Dosage: INJECT 5 ML (12 MG TOTAL) INTRATHECALLY EVERY 4 MONTHS
     Route: 050

REACTIONS (3)
  - Scoliosis [Unknown]
  - Post procedural complication [Unknown]
  - Post lumbar puncture syndrome [Unknown]
